FAERS Safety Report 4360645-4 (Version None)
Quarter: 2004Q2

REPORT INFORMATION
  Report Type: 
  Country: None (occurrence: None)
  Receive Date: 20040519
  Receipt Date: 20040519
  Transmission Date: 20050107
  Serious: Yes (Disabling)
  Sender: FDA-Public Use
  Company Number: None

PATIENT
  Age: 36 Year
  Sex: Female
  Weight: 52.1637 kg

DRUGS (3)
  1. REMERON [Suspect]
     Indication: ANXIETY
     Dosage: 30 TO 15 TO 7 NIGHTLY ORAL
     Route: 048
     Dates: start: 20021014, end: 20040424
  2. REMERON [Suspect]
     Indication: INSOMNIA
     Dosage: 30 TO 15 TO 7 NIGHTLY ORAL
     Route: 048
     Dates: start: 20021014, end: 20040424
  3. REMERON [Suspect]
     Indication: STRESS SYMPTOMS
     Dosage: 30 TO 15 TO 7 NIGHTLY ORAL
     Route: 048
     Dates: start: 20021014, end: 20040424

REACTIONS (12)
  - DIZZINESS [None]
  - EMOTIONAL DISTRESS [None]
  - EXTRASYSTOLES [None]
  - HEADACHE [None]
  - IMPAIRED WORK ABILITY [None]
  - INSOMNIA [None]
  - MARKEDLY REDUCED DIETARY INTAKE [None]
  - NAUSEA [None]
  - PANIC ATTACK [None]
  - PSYCHOTIC DISORDER [None]
  - VOMITING [None]
  - WEIGHT DECREASED [None]
